FAERS Safety Report 14928968 (Version 1)
Quarter: 2018Q2

REPORT INFORMATION
  Report Type: Spontaneous
  Country: US (occurrence: US)
  Receive Date: 20180504
  Receipt Date: 20180504
  Transmission Date: 20180711
  Serious: No
  Sender: FDA-Public Use
  Company Number: None

PATIENT
  Sex: Female
  Weight: 78.47 kg

DRUGS (3)
  1. FORTEO [Suspect]
     Active Substance: TERIPARATIDE
     Indication: OSTEOPOROSIS
     Route: 058
     Dates: start: 201709
  2. FORTEO [Suspect]
     Active Substance: TERIPARATIDE
     Indication: VITAMIN D DEFICIENCY
     Route: 058
     Dates: start: 201709
  3. FORTEO [Suspect]
     Active Substance: TERIPARATIDE
     Indication: SARCOIDOSIS
     Route: 058
     Dates: start: 201709

REACTIONS (2)
  - Arthralgia [None]
  - Pain [None]
